FAERS Safety Report 4471425-3 (Version None)
Quarter: 2004Q4

REPORT INFORMATION
  Report Type: 
  Country: None (occurrence: None)
  Receive Date: 20041007
  Receipt Date: 20041004
  Transmission Date: 20050328
  Serious: Yes (Other)
  Sender: FDA-Public Use
  Company Number: 002848

PATIENT
  Age: 59 Year
  Sex: Female

DRUGS (5)
  1. MEDROXYPROGESTERONE ACETATE [Suspect]
     Dosage: ORAL
     Route: 048
     Dates: start: 20000101, end: 20010101
  2. PROVERA [Suspect]
     Dosage: ORAL
     Route: 048
     Dates: start: 20000101, end: 20010101
  3. PREMARIN [Suspect]
     Dosage: ORAL
     Route: 048
     Dates: start: 20000101, end: 20010101
  4. ESTRATAB [Suspect]
     Dosage: ORAL
     Route: 048
     Dates: start: 19980101, end: 20000101
  5. MEDROXYPROGESTERONE ACETATE [Suspect]
     Dosage: ORAL
     Route: 048
     Dates: start: 20010101, end: 20020101

REACTIONS (1)
  - BREAST CANCER [None]
